FAERS Safety Report 17443403 (Version 1)
Quarter: 2020Q1

REPORT INFORMATION
  Report Type: Spontaneous
  Country: US (occurrence: US)
  Receive Date: 20200206
  Receipt Date: 20200206
  Transmission Date: 20200409
  Serious: Yes (Other)
  Sender: FDA-Public Use
  Company Number: None

PATIENT
  Age: 61 Year
  Sex: Female
  Weight: 73 kg

DRUGS (1)
  1. AMBRISENTAN 10MG TABS [Suspect]
     Active Substance: AMBRISENTAN
     Indication: PULMONARY ARTERIAL HYPERTENSION
     Route: 048
     Dates: start: 201910

REACTIONS (4)
  - Flushing [None]
  - Dyspnoea [None]
  - Fatigue [None]
  - Oedema peripheral [None]

NARRATIVE: CASE EVENT DATE: 20200206
